FAERS Safety Report 7119071-7 (Version None)
Quarter: 2010Q4

REPORT INFORMATION
  Report Type: 
  Country: None (occurrence: None)
  Receive Date: 20101123
  Receipt Date: 20101115
  Transmission Date: 20110411
  Serious: Yes (Hospitalization)
  Sender: FDA-Public Use
  Company Number: B0673286A

PATIENT
  Sex: Female
  Weight: 30 kg

DRUGS (10)
  1. VALTREX [Suspect]
     Indication: HERPES ZOSTER
     Dosage: 3000MG PER DAY
     Route: 048
     Dates: start: 20100730
  2. ADALAT CC [Concomitant]
     Route: 048
  3. BLOPRESS [Concomitant]
     Route: 048
  4. LOXONIN [Concomitant]
  5. FRANDOL S [Concomitant]
     Route: 062
  6. ASPARA-CA [Concomitant]
  7. SELBEX [Concomitant]
     Route: 048
  8. MAGNESIUM OXIDE [Concomitant]
     Route: 048
  9. DEPAS [Concomitant]
     Route: 048
  10. CHINESE MEDICINE [Concomitant]
     Route: 048

REACTIONS (11)
  - ALTERED STATE OF CONSCIOUSNESS [None]
  - BLOOD ALBUMIN DECREASED [None]
  - BLOOD CALCIUM DECREASED [None]
  - BLOOD CREATININE INCREASED [None]
  - BLOOD POTASSIUM DECREASED [None]
  - BLOOD SODIUM DECREASED [None]
  - BLOOD UREA INCREASED [None]
  - C-REACTIVE PROTEIN INCREASED [None]
  - HYPOGLYCAEMIA [None]
  - PROTEIN TOTAL DECREASED [None]
  - RENAL FAILURE [None]
